FAERS Safety Report 11482285 (Version 2)
Quarter: 2015Q3

REPORT INFORMATION
  Report Type: Spontaneous
  Country: US (occurrence: US)
  Receive Date: 20150903
  Receipt Date: 20150903
  Transmission Date: 20151125
  Serious: No
  Sender: FDA-Public Use
  Company Number: US-ELI_LILLY_AND_COMPANY-US201201008311

PATIENT
  Sex: Male
  Weight: 99.77 kg

DRUGS (1)
  1. CYMBALTA [Suspect]
     Active Substance: DULOXETINE HYDROCHLORIDE
     Indication: PAIN
     Dosage: 30 MG, QD
     Route: 048
     Dates: start: 20120104

REACTIONS (6)
  - Gait disturbance [Unknown]
  - Disturbance in attention [Unknown]
  - Urinary retention [Unknown]
  - Lethargy [Unknown]
  - Depression [Unknown]
  - Drug withdrawal syndrome [Unknown]
